FAERS Safety Report 4381819-2 (Version None)
Quarter: 2004Q2

REPORT INFORMATION
  Report Type: 
  Country: None (occurrence: None)
  Receive Date: 20040615
  Receipt Date: 20040609
  Transmission Date: 20050107
  Serious: Yes (Death)
  Sender: FDA-Public Use
  Company Number: 2004AP03066

PATIENT
  Age: 37 Year
  Sex: Male

DRUGS (1)
  1. DIPRIVAN [Suspect]

REACTIONS (1)
  - RHABDOMYOLYSIS [None]
